FAERS Safety Report 17040628 (Version 1)
Quarter: 2019Q4

REPORT INFORMATION
  Report Type: Report from Study
  Country: US (occurrence: US)
  Receive Date: 20191117
  Receipt Date: 20191117
  Transmission Date: 20200122
  Serious: Yes (Other)
  Sender: FDA-Public Use
  Company Number: US-BEH-2019109464

PATIENT
  Age: 73 Year
  Sex: Male
  Weight: 98.41 kg

DRUGS (1)
  1. SET, I.V. FLUID TRANSFER/ NEEDLE, HYPODERMIC, SINGLE LUMEN [Suspect]
     Active Substance: .ALPHA.1-PROTEINASE INHIBITOR HUMAN
     Indication: ALPHA-1 ANTI-TRYPSIN DEFICIENCY
     Dosage: UNK, QW
     Route: 042

REACTIONS (4)
  - Hand fracture [Unknown]
  - Tissue injury [Unknown]
  - Nerve injury [Unknown]
  - Accident at home [Unknown]

NARRATIVE: CASE EVENT DATE: 20191104
